FAERS Safety Report 4449142-5 (Version None)
Quarter: 2004Q3

REPORT INFORMATION
  Report Type: 
  Country: None (occurrence: None)
  Receive Date: 20040913
  Receipt Date: 20040827
  Transmission Date: 20050211
  Serious: Yes (Hospitalization)
  Sender: FDA-Public Use
  Company Number: LBID00204003065

PATIENT
  Age: 10 Year
  Sex: Male

DRUGS (4)
  1. LITHIUM CARBONATE [Suspect]
     Indication: MANIA
     Dosage: PO, 300 MG QID PO
     Route: 048
  2. METHYLPHENIDATE HCL [Suspect]
     Indication: ILL-DEFINED DISORDER
  3. ESCITALOPRAM (ESCITALOPRAM) [Suspect]
  4. CLONODINE (CLONODINE) [Suspect]
     Indication: ILL-DEFINED DISORDER

REACTIONS (23)
  - ABDOMINAL PAIN [None]
  - ATRIOVENTRICULAR BLOCK FIRST DEGREE [None]
  - BLOOD THYROID STIMULATING HORMONE DECREASED [None]
  - CHEST PAIN [None]
  - CONDUCTION DISORDER [None]
  - DIARRHOEA [None]
  - DISORIENTATION [None]
  - DIZZINESS [None]
  - DRUG LEVEL ABOVE THERAPEUTIC [None]
  - ELECTROCARDIOGRAM QRS COMPLEX PROLONGED [None]
  - FLUID INTAKE REDUCED [None]
  - HYPERHIDROSIS [None]
  - HYPOTENSION [None]
  - MANIA [None]
  - MARKEDLY REDUCED DIETARY INTAKE [None]
  - PALLOR [None]
  - PALPITATIONS [None]
  - TACHYARRHYTHMIA [None]
  - THERAPEUTIC AGENT TOXICITY [None]
  - VENTRICULAR EXTRASYSTOLES [None]
  - VENTRICULAR TACHYCARDIA [None]
  - VOMITING [None]
  - WHITE BLOOD CELL COUNT INCREASED [None]
